FAERS Safety Report 14631814 (Version 1)
Quarter: 2018Q1

REPORT INFORMATION
  Report Type: Spontaneous
  Country: CA (occurrence: CA)
  Receive Date: 20180313
  Receipt Date: 20180313
  Transmission Date: 20180509
  Serious: Yes (Other)
  Sender: FDA-Public Use
  Company Number: CA-SA-2017SA020036

PATIENT
  Age: 54 Year
  Sex: Female

DRUGS (9)
  1. REMICADE [Concomitant]
     Active Substance: INFLIXIMAB
     Route: 042
  2. SIMPONI [Concomitant]
     Active Substance: GOLIMUMAB
     Route: 065
  3. METHOTREXATE. [Concomitant]
     Active Substance: METHOTREXATE
  4. HYDROXYCHLOROQUINE SULFATE. [Suspect]
     Active Substance: HYDROXYCHLOROQUINE SULFATE
     Indication: RHEUMATOID ARTHRITIS
     Route: 048
  5. ACTEMRA [Suspect]
     Active Substance: TOCILIZUMAB
     Indication: RHEUMATOID ARTHRITIS
     Route: 065
  6. DESOXIMETASONE. [Suspect]
     Active Substance: DESOXIMETASONE
     Indication: PRODUCT USED FOR UNKNOWN INDICATION
     Route: 048
  7. METHOTREXATE SODIUM. [Suspect]
     Active Substance: METHOTREXATE SODIUM
     Indication: RHEUMATOID ARTHRITIS
     Route: 065
  8. ARAVA [Suspect]
     Active Substance: LEFLUNOMIDE
     Indication: RHEUMATOID ARTHRITIS
     Route: 048
  9. ENBREL [Suspect]
     Active Substance: ETANERCEPT
     Indication: RHEUMATOID ARTHRITIS
     Route: 058

REACTIONS (16)
  - Drug dependence [Not Recovered/Not Resolved]
  - Impaired work ability [Not Recovered/Not Resolved]
  - Joint range of motion decreased [Not Recovered/Not Resolved]
  - Alopecia [Not Recovered/Not Resolved]
  - Rheumatoid arthritis [Unknown]
  - Red blood cell sedimentation rate abnormal [Unknown]
  - Drug ineffective [Unknown]
  - Loss of personal independence in daily activities [Unknown]
  - Mobility decreased [Unknown]
  - Liver disorder [Not Recovered/Not Resolved]
  - Bone graft [Unknown]
  - Drug intolerance [Not Recovered/Not Resolved]
  - Ecchymosis [Not Recovered/Not Resolved]
  - Synovitis [Not Recovered/Not Resolved]
  - Lung disorder [Not Recovered/Not Resolved]
  - C-reactive protein abnormal [Unknown]

NARRATIVE: CASE EVENT DATE: 20150831
